FAERS Safety Report 13031126 (Version 2)
Quarter: 2016Q4

REPORT INFORMATION
  Report Type: Spontaneous
  Country: FR (occurrence: FR)
  Receive Date: 20161215
  Receipt Date: 20161216
  Transmission Date: 20170207
  Serious: Yes (Life-Threatening, Hospitalization)
  Sender: FDA-Public Use
  Company Number: FR-ELI_LILLY_AND_COMPANY-FR201612001256

PATIENT
  Age: 64 Year
  Sex: Female

DRUGS (4)
  1. NEOSYNEPHRINE [Concomitant]
     Active Substance: PHENYLEPHRINE HYDROCHLORIDE
     Indication: FUNDOSCOPY
     Dosage: UNK, UNKNOWN
     Route: 065
  2. CISPLATINE ACCORD [Suspect]
     Active Substance: CISPLATIN
     Indication: METASTATIC BRONCHIAL CARCINOMA
     Dosage: 128 MG, CYCLICAL
     Route: 042
     Dates: start: 20160531, end: 20160727
  3. MYDRIATICUM [Concomitant]
     Active Substance: TROPICAMIDE
     Indication: FUNDOSCOPY
     Dosage: UNK, UNKNOWN
     Route: 065
  4. ALIMTA [Suspect]
     Active Substance: PEMETREXED DISODIUM
     Indication: METASTATIC BRONCHIAL CARCINOMA
     Dosage: 850 MG, CYCLICAL
     Route: 042
     Dates: start: 20160531, end: 20160727

REACTIONS (6)
  - Seizure [Unknown]
  - Pancytopenia [Recovered/Resolved]
  - Septic shock [Recovered/Resolved]
  - Vomiting [Recovered/Resolved]
  - Bone marrow failure [Recovered/Resolved]
  - Nausea [Unknown]

NARRATIVE: CASE EVENT DATE: 201606
